FAERS Safety Report 24647363 (Version 1)
Quarter: 2024Q4

REPORT INFORMATION
  Report Type: Spontaneous
  Country: ES (occurrence: ES)
  Receive Date: 20241121
  Receipt Date: 20241121
  Transmission Date: 20250115
  Serious: Yes (Hospitalization)
  Sender: INTERCHEM
  Company Number: 24_00032427(0)

PATIENT
  Age: 60 Year
  Sex: Female

DRUGS (6)
  1. DEXMEDETOMIDINE HYDROCHLORIDE [Suspect]
     Active Substance: DEXMEDETOMIDINE HYDROCHLORIDE
     Indication: Sedative therapy
     Dosage: UNK, UNK
     Route: 065
     Dates: start: 20241008, end: 20241009
  2. AMIODARONE [Suspect]
     Active Substance: AMIODARONE
     Indication: Atrial fibrillation
     Dosage: 10 ML, QH
     Route: 065
     Dates: start: 20241008, end: 20241009
  3. PANTOPRAZOLE [Suspect]
     Active Substance: PANTOPRAZOLE
     Indication: Gastritis prophylaxis
     Dosage: 40 MG, QD
     Route: 065
     Dates: start: 20241008, end: 20241008
  4. FENTANYL [Suspect]
     Active Substance: FENTANYL
     Indication: Sedative therapy
     Dosage: UNK, UNK
     Route: 065
     Dates: start: 20241008, end: 20241009
  5. PROPOFOL [Suspect]
     Active Substance: PROPOFOL
     Indication: Sedative therapy
     Dosage: UNK, UNK
     Route: 065
     Dates: start: 20241008, end: 20241009
  6. CEFUROXIME [Concomitant]
     Active Substance: CEFUROXIME
     Indication: Infection prophylaxis
     Dosage: UNK, UNK
     Route: 065
     Dates: start: 20241008, end: 20241009

REACTIONS (6)
  - Echolalia [Recovered/Resolved]
  - Disorientation [Recovered/Resolved]
  - Acute psychosis [Recovered/Resolved]
  - Drug interaction [Recovered/Resolved]
  - Hallucination [Recovered/Resolved]
  - Agitation [Recovered/Resolved]

NARRATIVE: CASE EVENT DATE: 20241008
